FAERS Safety Report 14680751 (Version 1)
Quarter: 2018Q1

REPORT INFORMATION
  Report Type: Spontaneous
  Country: US (occurrence: US)
  Receive Date: 20180326
  Receipt Date: 20180326
  Transmission Date: 20180509
  Serious: No
  Sender: FDA-Public Use
  Company Number: US-TEIKOKU PHARMA USA-TPU2018-00110

PATIENT
  Sex: Female
  Weight: 79.45 kg

DRUGS (2)
  1. LIDODERM [Suspect]
     Active Substance: LIDOCAINE
     Indication: PAIN
     Dosage: ONE PATCH APPLIED TO THE HIP AND RIGHT BUTTOCK AREA
     Route: 061
  2. LIDOCAINE PATCH [Suspect]
     Active Substance: LIDOCAINE
     Indication: PAIN
     Dosage: ONE PATCH APPLIED TO THE HIP AND RIGHT BUTTOCK AREA
     Route: 061

REACTIONS (1)
  - Accident [Unknown]
